FAERS Safety Report 11322219 (Version 2)
Quarter: 2015Q3

REPORT INFORMATION
  Report Type: Spontaneous
  Country: US (occurrence: US)
  Receive Date: 20150729
  Receipt Date: 20150730
  Transmission Date: 20151125
  Serious: Yes (Other)
  Sender: FDA-Public Use
  Company Number: US-HOSPIRA-2873666

PATIENT
  Age: 5 Year
  Sex: Male
  Weight: 9 kg

DRUGS (2)
  1. CARBOPLATIN. [Suspect]
     Active Substance: CARBOPLATIN
     Indication: MEDULLOBLASTOMA
     Route: 041
     Dates: start: 2005
  2. ETOPOSIDE. [Concomitant]
     Active Substance: ETOPOSIDE
     Indication: MEDULLOBLASTOMA
     Dates: start: 2005

REACTIONS (1)
  - Myoclonic epilepsy [Recovered/Resolved]

NARRATIVE: CASE EVENT DATE: 2005
